FAERS Safety Report 5634614-8 (Version None)
Quarter: 2008Q1

REPORT INFORMATION
  Report Type: 
  Country: None (occurrence: None)
  Receive Date: 20080131
  Receipt Date: 20071025
  Transmission Date: 20080703
  Serious: No
  Sender: FDA-Public Use
  Company Number: 2007-US-000265

PATIENT
  Age: 12 Year
  Sex: Male
  Weight: 32.4 kg

DRUGS (1)
  1. INCRELEX [Suspect]
     Indication: IMPAIRED FASTING GLUCOSE
     Dosage: 2.8 MG, SUBCUTANEOUS
     Route: 058
     Dates: start: 20070601, end: 20071102

REACTIONS (2)
  - INJECTION SITE BRUISING [None]
  - INJECTION SITE PAIN [None]
